FAERS Safety Report 23587540 (Version 1)
Quarter: 2024Q1

REPORT INFORMATION
  Report Type: Spontaneous
  Country: US (occurrence: US)
  Receive Date: 20240301
  Receipt Date: 20240301
  Transmission Date: 20240410
  Serious: No
  Sender: FDA-Public Use
  Company Number: US-SA-SAC20240226001311

PATIENT
  Sex: Female

DRUGS (1)
  1. DUPIXENT [Suspect]
     Active Substance: DUPILUMAB
     Indication: Dermatitis atopic
     Dosage: 200 MG, QOW
     Route: 058
     Dates: start: 202301

REACTIONS (7)
  - Abdominal pain [Unknown]
  - Oropharyngeal pain [Unknown]
  - Erythema [Unknown]
  - Pruritus [Unknown]
  - Illness [Unknown]
  - Therapeutic response shortened [Unknown]
  - Product dose omission issue [Unknown]
